FAERS Safety Report 21950372 (Version 1)
Quarter: 2023Q1

REPORT INFORMATION
  Report Type: Report from Study
  Country: TW (occurrence: TW)
  Receive Date: 20230203
  Receipt Date: 20230203
  Transmission Date: 20230417
  Serious: Yes (Other)
  Sender: FDA-Public Use
  Company Number: TW-002147023-NVSC2022TW303419

PATIENT
  Sex: Male

DRUGS (9)
  1. COSENTYX [Suspect]
     Active Substance: SECUKINUMAB
     Indication: Product used for unknown indication
     Dosage: UNK
     Route: 058
  2. ARCOXIA [Concomitant]
     Active Substance: ETORICOXIB
     Indication: Analgesic therapy
     Dosage: 1 DOSAGE FORM, QD (28 TABLETS ONCE A DAY FOR 28 DAYS)
     Route: 065
  3. ARCOXIA [Concomitant]
     Active Substance: ETORICOXIB
     Indication: Antipyresis
  4. GASTER [Concomitant]
     Active Substance: FAMOTIDINE
     Indication: Gastric ulcer
     Dosage: 1 DOSAGE FORM, QD (28 TABLETS ONCE A DAY FOR 28 DAYS)
     Route: 065
  5. GASTER [Concomitant]
     Active Substance: FAMOTIDINE
     Indication: Duodenal ulcer
  6. FOLIC ACID [Concomitant]
     Active Substance: FOLIC ACID
     Indication: Vitamin supplementation
     Dosage: 1 DOSAGE FORM, QD (28 TABLETS ONCE A DAY FOR 28 DAYS)
     Route: 065
  7. FOLIC ACID [Concomitant]
     Active Substance: FOLIC ACID
     Indication: Supplementation therapy
  8. ARHEUMA [Concomitant]
     Indication: Rheumatoid arthritis
     Dosage: 1 DOSAGE FORM, QD (28 TABLETS ONCE DAILY FOR 28 DAYS)
     Route: 065
  9. DAIVOBET [Concomitant]
     Active Substance: BETAMETHASONE DIPROPIONATE\CALCIPOTRIENE
     Indication: Lymphocytic leukaemia
     Dosage: UNK UNK, BID (4 BOXES TWICE A DAY FOR 28 DAYS)
     Route: 065

REACTIONS (5)
  - Psoriatic arthropathy [Unknown]
  - Back pain [Unknown]
  - Gastrooesophageal reflux disease [Unknown]
  - Oesophagitis [Unknown]
  - Psoriasis [Unknown]
